FAERS Safety Report 19893064 (Version 2)
Quarter: 2021Q4

REPORT INFORMATION
  Report Type: Report from Study
  Country: IT (occurrence: IT)
  Receive Date: 20210929
  Receipt Date: 20211008
  Transmission Date: 20220303
  Serious: Yes (Other)
  Sender: FDA-Public Use
  Company Number: IT-SUN PHARMACEUTICAL INDUSTRIES LTD-2021R1-311560

PATIENT

DRUGS (1)
  1. ENTECAVIR [Suspect]
     Active Substance: ENTECAVIR
     Indication: Acute hepatitis B
     Dosage: 0.02 MILLIGRAM/KILOGRAM, ONCE A DAY
     Route: 048
     Dates: start: 2012

REACTIONS (1)
  - Hepatitis [Unknown]
